FAERS Safety Report 25611883 (Version 1)
Quarter: 2025Q3

REPORT INFORMATION
  Report Type: Spontaneous
  Country: US (occurrence: US)
  Receive Date: 20250728
  Receipt Date: 20250728
  Transmission Date: 20251020
  Serious: No
  Sender: PFIZER
  Company Number: US-PFIZER INC-202400243237

PATIENT
  Age: 75 Year
  Sex: Male

DRUGS (2)
  1. BRAFTOVI [Suspect]
     Active Substance: ENCORAFENIB
     Dosage: TAKE 6 CAPSULES (450 MG TOTAL) BY MOUTH 1 TIME EACH DAY WITH OR WITHOUT FOOD
     Route: 048
  2. MEKTOVI [Suspect]
     Active Substance: BINIMETINIB
     Dosage: TAKE 45 MG BY MOUTH 2 (TWO) TIMES A DAY
     Route: 048

REACTIONS (2)
  - Confusional state [Unknown]
  - Malaise [Unknown]
